FAERS Safety Report 9795572 (Version 1)
Quarter: 2014Q1

REPORT INFORMATION
  Report Type: Spontaneous
  Country: US (occurrence: US)
  Receive Date: 20140103
  Receipt Date: 20140103
  Transmission Date: 20141002
  Serious: Yes (Other)
  Sender: FDA-Public Use
  Company Number: US-BAYER-2014-000781

PATIENT
  Age: 48 Year
  Sex: Female

DRUGS (12)
  1. YAZ [Suspect]
  2. YASMIN [Suspect]
  3. PREDNISONE [Concomitant]
     Dosage: 10 MG TABLETS, 21 DISPENSED
  4. FISH OIL [Concomitant]
     Dosage: 1000 MG, UNK
  5. CLARITIN [Concomitant]
     Dosage: 10 MG, DAILY
  6. MULTIVITAMIN [Concomitant]
  7. ZINC [Concomitant]
     Dosage: 100 MG, UNK
  8. GLUCOSAMINE W/CHONDROITIN SULFATE [Concomitant]
     Dosage: 1500 MG, UNK
  9. FLAX SEED OIL [Concomitant]
     Dosage: 1000 MG, UNK
  10. CALCIUM [Concomitant]
     Dosage: 600 MG, UNK
  11. BABY ASPIRIN [Concomitant]
  12. NAPROXEN [Concomitant]

REACTIONS (1)
  - Deep vein thrombosis [Recovered/Resolved]
